FAERS Safety Report 5525151-X (Version None)
Quarter: 2007Q4

REPORT INFORMATION
  Report Type: 
  Country: None (occurrence: None)
  Receive Date: 20071126
  Receipt Date: 20071116
  Transmission Date: 20080405
  Serious: Yes (Life-Threatening, Hospitalization, Disabling)
  Sender: FDA-Public Use
  Company Number: PL-BRISTOL-MYERS SQUIBB COMPANY-13075643

PATIENT
  Age: 76 Year
  Sex: Male
  Weight: 80 kg

DRUGS (10)
  1. IRBESARTAN [Suspect]
     Indication: HYPERTENSION
     Dates: start: 20050427, end: 20050728
  2. BLINDED: PLACEBO [Suspect]
     Indication: HYPERTENSION
     Dates: start: 20050427, end: 20050728
  3. CLOPIDOGREL BISULFATE [Suspect]
     Indication: PROPHYLAXIS
     Dates: start: 20050427, end: 20050730
  4. ASPIRIN [Suspect]
     Indication: PROPHYLAXIS
     Dates: start: 20050427, end: 20050730
  5. CALCIUM DOBESILATE [Concomitant]
  6. LACIDIPINE [Concomitant]
  7. PRESTARIUM [Concomitant]
  8. SOTALOL HYDROCHLORIDE [Concomitant]
  9. RANITIDINE HCL [Concomitant]
  10. PENTOXIFYLLINE [Concomitant]

REACTIONS (1)
  - HEPATOCELLULAR DAMAGE [None]
